FAERS Safety Report 14586031 (Version 1)
Quarter: 2018Q1

REPORT INFORMATION
  Report Type: Spontaneous
  Country: US (occurrence: US)
  Receive Date: 20180228
  Receipt Date: 20180228
  Transmission Date: 20180509
  Serious: Yes (Hospitalization)
  Sender: FDA-Public Use
  Company Number: None

PATIENT
  Age: 78 Year
  Sex: Male
  Weight: 70 kg

DRUGS (9)
  1. CLOPIDOGREL [Concomitant]
     Active Substance: CLOPIDOGREL BISULFATE
  2. ATORVASTATIN [Concomitant]
     Active Substance: ATORVASTATIN
  3. MINERAL OIL ENEMA [Concomitant]
     Active Substance: MINERAL OIL
  4. MELATONIN [Concomitant]
     Active Substance: MELATONIN
  5. COLCHICINE. [Concomitant]
     Active Substance: COLCHICINE
  6. LITHIUM. [Concomitant]
     Active Substance: LITHIUM
  7. LOSARTAN. [Concomitant]
     Active Substance: LOSARTAN
  8. CASODEX [Suspect]
     Active Substance: BICALUTAMIDE
     Dates: end: 20180223
  9. ZOLADEX [Suspect]
     Active Substance: GOSERELIN ACETATE
     Dates: end: 20180201

REACTIONS (4)
  - Cerebrovascular disorder [None]
  - Endothelial dysfunction [None]
  - Speech disorder [None]
  - Cerebrovascular accident [None]

NARRATIVE: CASE EVENT DATE: 20180209
